FAERS Safety Report 9922127 (Version 1)
Quarter: 2014Q1

REPORT INFORMATION
  Report Type: Spontaneous
  Country: GB (occurrence: GB)
  Receive Date: 20140225
  Receipt Date: 20140225
  Transmission Date: 20141002
  Serious: Yes (Other)
  Sender: FDA-Public Use
  Company Number: GB-ASTRAZENECA-2014SE11251

PATIENT
  Age: 46 Year
  Sex: Female

DRUGS (2)
  1. LIDOCAINE [Suspect]
     Indication: NEURALGIA
     Route: 061
     Dates: start: 20131121
  2. ANALGESICS [Concomitant]

REACTIONS (1)
  - Application site irritation [Recovered/Resolved]
